FAERS Safety Report 6309895-8 (Version None)
Quarter: 2009Q3

REPORT INFORMATION
  Report Type: 
  Country: None (occurrence: None)
  Receive Date: 20090814
  Receipt Date: 20090804
  Transmission Date: 20100115
  Serious: Yes (Hospitalization)
  Sender: FDA-Public Use
  Company Number: A0745302A

PATIENT
  Age: 62 Year
  Sex: Male
  Weight: 99.1 kg

DRUGS (6)
  1. AVANDIA [Suspect]
     Dosage: 4MG VARIABLE DOSE
     Route: 048
     Dates: start: 20051101, end: 20070601
  2. DIABETA [Concomitant]
     Dates: start: 20051201
  3. POTASSIUM CHLORIDE [Concomitant]
  4. HYDRALAZINE HCL [Concomitant]
  5. NORVASC [Concomitant]
  6. LIPITOR [Concomitant]

REACTIONS (3)
  - CARDIOVASCULAR DISORDER [None]
  - CHEST PAIN [None]
  - MUSCULOSKELETAL PAIN [None]
